FAERS Safety Report 8606896-1 (Version None)
Quarter: 2012Q3

REPORT INFORMATION
  Report Type: 
  Country: None (occurrence: None)
  Receive Date: 20120820
  Receipt Date: 20120815
  Transmission Date: 20120928
  Serious: Yes (Disabling)
  Sender: FDA-Public Use
  Company Number: GB-TEVA-353952ISR

PATIENT
  Age: 50 Year
  Sex: Female
  Weight: 65 kg

DRUGS (4)
  1. BACLOFEN [Suspect]
     Route: 048
     Dates: start: 20120101
  2. LAMOTRIGINE [Concomitant]
     Indication: MOOD ALTERED
     Route: 048
     Dates: start: 20120525
  3. BACLOFEN [Suspect]
     Route: 048
     Dates: start: 20120201, end: 20120714
  4. BACLOFEN [Suspect]
     Indication: ALCOHOLISM
     Dosage: 30 MILLIGRAM DAILY;
     Route: 048
     Dates: start: 20111201

REACTIONS (3)
  - PAIN IN EXTREMITY [None]
  - HYPERMOBILITY SYNDROME [None]
  - PARAESTHESIA [None]
